FAERS Safety Report 9697931 (Version 1)
Quarter: 2013Q4

REPORT INFORMATION
  Report Type: Report from Study
  Country: US (occurrence: US)
  Receive Date: 20131120
  Receipt Date: 20131120
  Transmission Date: 20140711
  Serious: No
  Sender: FDA-Public Use
  Company Number: US-ALEXION-A201302855

PATIENT
  Age: 77 Year
  Sex: Male
  Weight: 54.42 kg

DRUGS (5)
  1. SOLIRIS [Suspect]
     Indication: PAROXYSMAL NOCTURNAL HAEMOGLOBINURIA
     Dosage: 600 MG, QW
     Route: 042
     Dates: start: 20120301
  2. SOLIRIS [Suspect]
     Dosage: 900 MG
     Route: 042
     Dates: start: 20120329
  3. ASPIRIN [Concomitant]
     Dosage: 81 MG, QD
     Dates: start: 20110606
  4. GABAPENTIN [Concomitant]
     Dosage: 600 MG, BID
  5. OXYCODONE [Concomitant]
     Dosage: 5 MG, PRN

REACTIONS (2)
  - Herpes zoster [Recovered/Resolved]
  - Eye pain [Recovered/Resolved]
